FAERS Safety Report 25020656 (Version 1)
Quarter: 2025Q1

REPORT INFORMATION
  Report Type: Spontaneous
  Country: US (occurrence: US)
  Receive Date: 20250227
  Receipt Date: 20250227
  Transmission Date: 20250409
  Serious: No
  Sender: GALDERMA
  Company Number: US-GALDERMA-US2025001515

PATIENT

DRUGS (1)
  1. NEMLUVIO [Suspect]
     Active Substance: NEMOLIZUMAB-ILTO
     Indication: Neurodermatitis
     Route: 058
     Dates: start: 20250131, end: 20250131

REACTIONS (9)
  - Nausea [Unknown]
  - Tremor [Unknown]
  - Chills [Unknown]
  - Brain fog [Unknown]
  - Headache [Unknown]
  - Heart rate increased [Unknown]
  - Presyncope [Unknown]
  - Visual impairment [Unknown]
  - Skin warm [Unknown]

NARRATIVE: CASE EVENT DATE: 20250131
